FAERS Safety Report 20102115 (Version 1)
Quarter: 2021Q4

REPORT INFORMATION
  Report Type: Spontaneous
  Country: US (occurrence: US)
  Receive Date: 20211123
  Receipt Date: 20211123
  Transmission Date: 20220303
  Serious: No
  Sender: FDA-Public Use
  Company Number: US-LUPIN PHARMACEUTICALS INC.-2021-22644

PATIENT
  Age: 28 Year
  Sex: Female

DRUGS (7)
  1. TRIAMCINOLONE [Suspect]
     Active Substance: TRIAMCINOLONE
     Indication: Plasma cell mastitis
     Dosage: UNK (TRIAMCINOLONE 40MG/1ML INJECTION MIXED WITH LIDOCAINE 2% 3ML WAS GIVEN INTO THE AFFECTED AREAS
     Route: 065
  2. PREDNISONE [Suspect]
     Active Substance: PREDNISONE
     Indication: Plasma cell mastitis
     Dosage: 30 MILLIGRAM, QD (THE WOMAN WAS STARTED ON A PREDNISONE TAPER AT 30 MG/DAY FOR 6 DAY COURSE, DECREAS
     Route: 048
  3. PREDNISONE [Suspect]
     Active Substance: PREDNISONE
     Dosage: 20 MILLIGRAM, QD
     Route: 048
  4. LIDOCAINE [Suspect]
     Active Substance: LIDOCAINE
     Indication: Plasma cell mastitis
     Dosage: 3 MILLILITER (TRIAMCINOLONE 40MG/1ML INJECTION MIXED WITH 2% LIDOCAINE 3ML WAS GIVEN INTO THE AFFECT
     Route: 065
  5. IBUPROFEN [Suspect]
     Active Substance: IBUPROFEN
     Indication: Plasma cell mastitis
     Dosage: UNK
     Route: 065
  6. ACETAMINOPHEN [Suspect]
     Active Substance: ACETAMINOPHEN
     Indication: Plasma cell mastitis
     Dosage: UNK
     Route: 065
  7. BREWERS YEAST [Suspect]
     Active Substance: SACCHAROMYCES CEREVISIAE
     Indication: Nutritional supplementation
     Dosage: UNK
     Route: 065

REACTIONS (1)
  - Maternal exposure during breast feeding [Unknown]
